FAERS Safety Report 8766538 (Version 1)
Quarter: 2012Q4

REPORT INFORMATION
  Report Type: 
  Country: CN (occurrence: CN)
  Receive Date: 20120905
  Receipt Date: 20120905
  Transmission Date: 20130627
  Serious: Yes (Other)
  Sender: FDA-Public Use
  Company Number: CN-ASTRAZENECA-2012SE65978

PATIENT
  Sex: Female
  Weight: 47 kg

DRUGS (2)
  1. ESOMEPRAZOLE MAGNESIUM [Suspect]
     Indication: GASTRITIS PROPHYLAXIS
     Route: 048
     Dates: start: 20110501, end: 20110501
  2. CEFUROXIME [Suspect]
     Indication: INFECTION
     Route: 042

REACTIONS (2)
  - Rash [Recovered/Resolved]
  - Anaphylactic reaction [Recovered/Resolved]
